FAERS Safety Report 24647243 (Version 2)
Quarter: 2024Q4

REPORT INFORMATION
  Report Type: Spontaneous
  Country: US (occurrence: US)
  Receive Date: 20241121
  Receipt Date: 20241225
  Transmission Date: 20250114
  Serious: No
  Sender: CSL BEHRING
  Company Number: US-BEH-2024183748

PATIENT
  Age: 44 Year
  Sex: Female

DRUGS (2)
  1. HIZENTRA [Suspect]
     Active Substance: HUMAN IMMUNOGLOBULIN G
     Indication: Immunodeficiency common variable
     Dosage: INFUSE 7G (35ML-ONE 4G PFS, ONE 2G PFS, AND ONE 1G PFS) SUBCUTANEOUSLY EVERY 7 DAYS
     Route: 058
  2. HIZENTRA [Suspect]
     Active Substance: HUMAN IMMUNOGLOBULIN G
     Dosage: INFUSE 7G (35ML-ONE 4G PFS, ONE 2G PFS, AND ONE 1G PFS) SUBCUTANEOUSLY EVERY 7 DAYS
     Route: 058

REACTIONS (1)
  - Product dose omission in error [Unknown]
